FAERS Safety Report 6164023-7 (Version None)
Quarter: 2009Q2

REPORT INFORMATION
  Report Type: 
  Country: None (occurrence: None)
  Receive Date: 20090420
  Receipt Date: 20090417
  Transmission Date: 20091009
  Serious: Yes (Other)
  Sender: FDA-Public Use
  Company Number: 2009SP008180

PATIENT
  Age: 10 Year
  Sex: Male

DRUGS (1)
  1. COPPERTONE WATER BABIES LOTION, SPF 50 (AVOBENZONE/HOMOSALATE/OCTISALA [Suspect]
     Indication: DRUG USE FOR UNKNOWN INDICATION
     Dosage: TOP
     Route: 061

REACTIONS (4)
  - AURICULAR SWELLING [None]
  - RASH ERYTHEMATOUS [None]
  - RASH PRURITIC [None]
  - SWELLING FACE [None]
